FAERS Safety Report 9362017 (Version 2)
Quarter: 2013Q3

REPORT INFORMATION
  Report Type: Spontaneous
  Country: IT (occurrence: IT)
  Receive Date: 20130621
  Receipt Date: 20130701
  Transmission Date: 20140515
  Serious: Yes (Hospitalization)
  Sender: FDA-Public Use
  Company Number: IT-ASTRAZENECA-2013SE46344

PATIENT
  Age: 14018 Day
  Sex: Male

DRUGS (3)
  1. CRESTOR [Suspect]
     Indication: THROMBOTIC STROKE
     Route: 048
     Dates: start: 20130502, end: 20130517
  2. LANSOPRAZOLE [Concomitant]
     Route: 048
  3. COUMADIN [Concomitant]
     Route: 048

REACTIONS (3)
  - Cholestasis [Recovering/Resolving]
  - Hepatotoxicity [Recovering/Resolving]
  - Transaminases increased [Recovering/Resolving]
